FAERS Safety Report 16617181 (Version 1)
Quarter: 2019Q3

REPORT INFORMATION
  Report Type: Spontaneous
  Country: US (occurrence: US)
  Receive Date: 20190610
  Receipt Date: 20190610
  Transmission Date: 20191004
  Serious: Yes (Hospitalization)
  Sender: FDA-Public Use
  Company Number: None

PATIENT
  Age: 43 Year
  Sex: Female
  Weight: 84 kg

DRUGS (1)
  1. DAPSONE. [Suspect]
     Active Substance: DAPSONE
     Indication: CUSHING^S SYNDROME
     Route: 048
     Dates: start: 20190125, end: 20190502

REACTIONS (6)
  - Blood lactic acid increased [None]
  - Blood pH increased [None]
  - PCO2 decreased [None]
  - Peripheral swelling [None]
  - Pain in extremity [None]
  - Methaemoglobinaemia [None]

NARRATIVE: CASE EVENT DATE: 20190502
